FAERS Safety Report 5092893-2 (Version None)
Quarter: 2006Q3

REPORT INFORMATION
  Report Type: 
  Country: None (occurrence: None)
  Receive Date: 20060828
  Receipt Date: 20060815
  Transmission Date: 20061208
  Serious: Yes (Hospitalization)
  Sender: FDA-Public Use
  Company Number: 2006100116

PATIENT
  Age: 48 Year
  Sex: Female

DRUGS (2)
  1. BENADRYL [Suspect]
     Indication: SUICIDE ATTEMPT
     Dosage: 70 ONCE, ORAL
     Route: 048
     Dates: start: 20060618, end: 20060618
  2. BLINDED THERAPY (BLINDED THERAPY) [Suspect]
     Indication: MAJOR DEPRESSION
     Dosage: TOOK APPROX 12-DAY SUPPLY OF BLINDED, ORAL
     Route: 048
     Dates: start: 20060616, end: 20060618

REACTIONS (2)
  - INTENTIONAL OVERDOSE [None]
  - SUICIDE ATTEMPT [None]
